FAERS Safety Report 6393054-7 (Version None)
Quarter: 2009Q4

REPORT INFORMATION
  Report Type: 
  Country: None (occurrence: None)
  Receive Date: 20091008
  Receipt Date: 20091005
  Transmission Date: 20100525
  Serious: Yes (Hospitalization)
  Sender: FDA-Public Use
  Company Number: AU-SP-2009-03521

PATIENT
  Age: 17 Year
  Sex: Female

DRUGS (1)
  1. IMMUCYST [Suspect]
     Indication: IMMUNISATION
     Route: 030
     Dates: start: 20090812

REACTIONS (8)
  - ADVERSE REACTION [None]
  - FATIGUE [None]
  - IMMUNISATION REACTION [None]
  - INJECTION SITE ABSCESS [None]
  - LETHARGY [None]
  - MALAISE [None]
  - PYREXIA [None]
  - WRONG DRUG ADMINISTERED [None]
